FAERS Safety Report 7778303-2 (Version None)
Quarter: 2011Q3

REPORT INFORMATION
  Report Type: 
  Country: None (occurrence: None)
  Receive Date: 20110926
  Receipt Date: 20110920
  Transmission Date: 20111222
  Serious: Yes (Hospitalization)
  Sender: FDA-Public Use
  Company Number: BR-ABBOTT-11P-020-0856989-00

PATIENT
  Sex: Female
  Weight: 87 kg

DRUGS (1)
  1. HUMIRA [Suspect]
     Indication: RHEUMATOID ARTHRITIS
     Route: 058
     Dates: start: 20101101, end: 20110915

REACTIONS (7)
  - DYSPNOEA [None]
  - HEADACHE [None]
  - DIARRHOEA [None]
  - PYREXIA [None]
  - APHONIA [None]
  - PAIN [None]
  - HYPERSENSITIVITY [None]
